FAERS Safety Report 10961953 (Version 1)
Quarter: 2015Q1

REPORT INFORMATION
  Report Type: Report from Study
  Country: IT (occurrence: IT)
  Receive Date: 20150327
  Receipt Date: 20150327
  Transmission Date: 20150721
  Serious: Yes (Death, Life-Threatening, Hospitalization)
  Sender: FDA-Public Use
  Company Number: PHHY2013IT082002

PATIENT
  Age: 56 Year
  Sex: Male
  Weight: 85 kg

DRUGS (1)
  1. CERTICAN [Suspect]
     Active Substance: EVEROLIMUS
     Indication: HEART TRANSPLANT
     Dosage: 0.5 MG, QD
     Route: 048
     Dates: start: 20060418

REACTIONS (5)
  - Lymphoma [Fatal]
  - Metastases to peritoneum [Fatal]
  - Metastases to liver [Fatal]
  - Adenocarcinoma gastric [Fatal]
  - Generalised oedema [Fatal]

NARRATIVE: CASE EVENT DATE: 20100728
